FAERS Safety Report 16826211 (Version 4)
Quarter: 2020Q3

REPORT INFORMATION
  Report Type: Spontaneous
  Country: US (occurrence: US)
  Receive Date: 20190919
  Receipt Date: 20200710
  Transmission Date: 20201102
  Serious: Yes (Life-Threatening, Hospitalization, Other)
  Sender: FDA-Public Use
  Company Number: US-BIOGEN-2019BI00785449

PATIENT
  Age: 59 Year
  Sex: Female

DRUGS (6)
  1. TECFIDERA [Suspect]
     Active Substance: DIMETHYL FUMARATE
     Indication: MULTIPLE SCLEROSIS
     Route: 065
     Dates: start: 20171030, end: 20200620
  2. TECFIDERA [Suspect]
     Active Substance: DIMETHYL FUMARATE
     Route: 065
  3. SEROQUEL [Suspect]
     Active Substance: QUETIAPINE FUMARATE
     Indication: SUICIDE ATTEMPT
     Route: 065
  4. TECFIDERA [Suspect]
     Active Substance: DIMETHYL FUMARATE
     Route: 065
  5. COPAXONE [Suspect]
     Active Substance: GLATIRAMER ACETATE
     Indication: PRODUCT USED FOR UNKNOWN INDICATION
     Route: 065
  6. SEROQUEL [Suspect]
     Active Substance: QUETIAPINE FUMARATE
     Route: 065

REACTIONS (20)
  - Hostility [Unknown]
  - Irritability [Unknown]
  - Suicide attempt [Recovered/Resolved]
  - Seizure like phenomena [Unknown]
  - Bipolar disorder [Unknown]
  - Memory impairment [Unknown]
  - Hypertension [Unknown]
  - Epilepsy [Not Recovered/Not Resolved]
  - Mental disorder [Recovered/Resolved]
  - Inappropriate schedule of product administration [Unknown]
  - Schizophrenia [Not Recovered/Not Resolved]
  - Headache [Unknown]
  - Psychotic disorder [Recovered/Resolved]
  - Aggression [Unknown]
  - Near death experience [Unknown]
  - Mass [Unknown]
  - Cardiac disorder [Recovered/Resolved]
  - Major depression [Not Recovered/Not Resolved]
  - Seizure [Unknown]
  - Agitation [Unknown]

NARRATIVE: CASE EVENT DATE: 2019
